FAERS Safety Report 6839455-1 (Version None)
Quarter: 2010Q3

REPORT INFORMATION
  Report Type: 
  Country: None (occurrence: None)
  Receive Date: 20100714
  Receipt Date: 20090605
  Transmission Date: 20110219
  Serious: No
  Sender: FDA-Public Use
  Company Number: A0789096A

PATIENT
  Age: 54 Year
  Sex: Female

DRUGS (4)
  1. FLOVENT [Suspect]
     Indication: ASTHMA
     Dosage: 1PUFF PER DAY
     Route: 055
     Dates: start: 19990601
  2. ZYRTEC [Concomitant]
  3. PROVENTIL [Concomitant]
  4. LEVOTHYROXINE SODIUM [Concomitant]

REACTIONS (4)
  - BURNING SENSATION [None]
  - EXPIRED DRUG ADMINISTERED [None]
  - MUCOSAL INFLAMMATION [None]
  - OROPHARYNGEAL PAIN [None]
